FAERS Safety Report 7691740-X (Version None)
Quarter: 2011Q3

REPORT INFORMATION
  Report Type: 
  Country: None (occurrence: None)
  Receive Date: 20110818
  Receipt Date: 20110810
  Transmission Date: 20111222
  Serious: Yes (Other)
  Sender: FDA-Public Use
  Company Number: US-GLAXOSMITHKLINE-A0941294A

PATIENT
  Age: 73 Year
  Sex: Female
  Weight: 51.3 kg

DRUGS (1)
  1. FLOLAN [Suspect]
     Indication: PULMONARY ARTERIAL HYPERTENSION
     Dosage: 73NGKM UNKNOWN
     Route: 065
     Dates: start: 19991101

REACTIONS (2)
  - ABDOMINAL DISTENSION [None]
  - STOMACH MASS [None]
